FAERS Safety Report 5361787-7 (Version None)
Quarter: 2007Q2

REPORT INFORMATION
  Report Type: 
  Country: None (occurrence: None)
  Receive Date: 20070619
  Receipt Date: 20070611
  Transmission Date: 20071010
  Serious: Yes (Hospitalization)
  Sender: FDA-Public Use
  Company Number: HQWYE906127MAR07

PATIENT
  Sex: Male

DRUGS (10)
  1. CORDARONE [Suspect]
     Indication: ARRHYTHMIA PROPHYLAXIS
     Dosage: NOT SPECIFIED
     Route: 065
     Dates: start: 19960101, end: 20040101
  2. ASPIRIN [Concomitant]
     Indication: THROMBOSIS PROPHYLAXIS
     Route: 048
     Dates: start: 20040929
  3. ISOKET [Concomitant]
  4. LEXOTANIL [Concomitant]
  5. TENORMIN [Concomitant]
  6. TORSEMIDE [Concomitant]
  7. MAGNESIUM CITRATE [Concomitant]
  8. CLOPIDOGREL [Concomitant]
     Indication: THROMBOSIS PROPHYLAXIS
     Route: 048
     Dates: start: 20040929, end: 20070215
  9. CLOPIDOGREL [Concomitant]
     Route: 048
     Dates: start: 20070306
  10. CORVATON ^HOECHST^ [Concomitant]

REACTIONS (5)
  - GRANULOMA [None]
  - INTERSTITIAL LUNG DISEASE [None]
  - PULMONARY FIBROSIS [None]
  - PULMONARY SARCOIDOSIS [None]
  - SILICOSIS [None]
